FAERS Safety Report 25348863 (Version 1)
Quarter: 2025Q2

REPORT INFORMATION
  Report Type: Spontaneous
  Country: FR (occurrence: FR)
  Receive Date: 20250522
  Receipt Date: 20250522
  Transmission Date: 20250717
  Serious: Yes (Death)
  Sender: NOVARTIS
  Company Number: None

PATIENT
  Age: 65 Year
  Sex: Female
  Weight: 70 kg

DRUGS (14)
  1. METFORMIN HYDROCHLORIDE [Suspect]
     Active Substance: METFORMIN HYDROCHLORIDE
     Indication: Type 2 diabetes mellitus
     Dosage: 2000 MG, QD
     Route: 048
     Dates: end: 20250420
  2. SITAGLIPTIN [Suspect]
     Active Substance: SITAGLIPTIN
     Indication: Type 2 diabetes mellitus
     Dosage: 100 MG, QD
     Route: 048
     Dates: end: 20250420
  3. ENTRESTO [Suspect]
     Active Substance: SACUBITRIL\VALSARTAN
     Indication: Hypertension
     Dosage: 1 DOSAGE FORM, QD
     Route: 048
     Dates: start: 20250416, end: 20250420
  4. VISIPAQUE [Suspect]
     Active Substance: IODIXANOL
     Indication: Angiocardiogram
     Route: 042
     Dates: start: 20250416, end: 20250416
  5. SPIRONOLACTONE [Suspect]
     Active Substance: SPIRONOLACTONE
     Indication: Hypertension
     Dosage: 25 MG, QD
     Route: 048
     Dates: start: 20250416, end: 20250420
  6. DAPAGLIFLOZIN [Concomitant]
     Active Substance: DAPAGLIFLOZIN
     Indication: Product used for unknown indication
     Route: 065
  7. APIXABAN [Concomitant]
     Active Substance: APIXABAN
     Indication: Product used for unknown indication
     Route: 065
  8. BISOPROLOL [Concomitant]
     Active Substance: BISOPROLOL
     Indication: Product used for unknown indication
     Route: 065
  9. GLICLAZIDE [Concomitant]
     Active Substance: GLICLAZIDE
     Indication: Product used for unknown indication
     Route: 065
  10. PANTOPRAZOLE [Concomitant]
     Active Substance: PANTOPRAZOLE
     Indication: Product used for unknown indication
     Route: 065
  11. CLOPIDOGREL [Concomitant]
     Active Substance: CLOPIDOGREL BISULFATE
     Indication: Product used for unknown indication
     Route: 065
  12. FUROSEMIDE [Concomitant]
     Active Substance: FUROSEMIDE
     Indication: Product used for unknown indication
     Route: 065
  13. ROSUVASTATIN [Concomitant]
     Active Substance: ROSUVASTATIN
     Indication: Product used for unknown indication
     Route: 065
  14. EZETIMIBE [Concomitant]
     Active Substance: EZETIMIBE
     Indication: Product used for unknown indication
     Route: 065

REACTIONS (5)
  - Gastrointestinal disorder [Fatal]
  - Acute kidney injury [Fatal]
  - Lactic acidosis [Fatal]
  - Hyperkalaemia [Fatal]
  - Shock [Fatal]

NARRATIVE: CASE EVENT DATE: 20250420
